FAERS Safety Report 5637496-3 (Version None)
Quarter: 2008Q1

REPORT INFORMATION
  Report Type: 
  Country: None (occurrence: None)
  Receive Date: 20080225
  Receipt Date: 20080213
  Transmission Date: 20080703
  Serious: Yes (Hospitalization, Other)
  Sender: FDA-Public Use
  Company Number: US-PFIZER INC-2008014725

PATIENT

DRUGS (4)
  1. LYRICA [Suspect]
  2. ZOLOFT [Concomitant]
  3. ALL OTHER THERAPEUTIC PRODUCTS [Concomitant]
  4. DRUG, UNSPECIFIED [Concomitant]

REACTIONS (2)
  - AGITATION [None]
  - MYOCARDIAL INFARCTION [None]
